FAERS Safety Report 14940902 (Version 1)
Quarter: 2018Q2

REPORT INFORMATION
  Report Type: Report from Study
  Country: US (occurrence: US)
  Receive Date: 20180525
  Receipt Date: 20180525
  Transmission Date: 20180711
  Serious: Yes (Hospitalization)
  Sender: FDA-Public Use
  Company Number: PHEH2018US019686

PATIENT
  Sex: Male

DRUGS (1)
  1. ENTRESTO [Suspect]
     Active Substance: SACUBITRIL\VALSARTAN
     Indication: PRODUCT USED FOR UNKNOWN INDICATION
     Dosage: UNK UNK, BID
     Route: 048

REACTIONS (11)
  - Fatigue [Unknown]
  - Sleep disorder [Unknown]
  - Pneumonia [Unknown]
  - Asthenia [Unknown]
  - Dyspnoea [Unknown]
  - Atrial fibrillation [Unknown]
  - Lung disorder [Unknown]
  - Hepatic steatosis [Unknown]
  - Cough [Unknown]
  - Fluid retention [Unknown]
  - Headache [Unknown]
